FAERS Safety Report 4949658-9 (Version None)
Quarter: 2006Q1

REPORT INFORMATION
  Report Type: 
  Country: None (occurrence: None)
  Receive Date: 20060316
  Receipt Date: 20060303
  Transmission Date: 20060701
  Serious: Yes (Death)
  Sender: FDA-Public Use
  Company Number: 2005140620

PATIENT
  Sex: Male

DRUGS (6)
  1. NEURONTIN [Suspect]
     Indication: NEURALGIA
     Dates: start: 19990301
  2. NEURONTIN [Suspect]
     Indication: PAIN
     Dates: start: 19990301
  3. PARECOXIB SODIUM [Concomitant]
  4. ALTACE [Concomitant]
  5. ULTRAM [Concomitant]
  6. OXYCONTIN [Concomitant]

REACTIONS (3)
  - COMPLETED SUICIDE [None]
  - DRUG INEFFECTIVE [None]
  - GUN SHOT WOUND [None]
